FAERS Safety Report 6898934-1 (Version None)
Quarter: 2010Q3

REPORT INFORMATION
  Report Type: 
  Country: None (occurrence: None)
  Receive Date: 20100802
  Receipt Date: 20071220
  Transmission Date: 20110219
  Serious: No
  Sender: FDA-Public Use
  Company Number: US-PFIZER INC-2007107395

PATIENT
  Sex: Female
  Weight: 77.1 kg

DRUGS (4)
  1. LYRICA [Suspect]
     Indication: FIBROMYALGIA
     Dates: start: 20070601
  2. DEPAKOTE [Concomitant]
  3. TRILEPTAL [Concomitant]
  4. LEXAPRO [Concomitant]

REACTIONS (6)
  - ALOPECIA [None]
  - BALANCE DISORDER [None]
  - CONFUSIONAL STATE [None]
  - INCREASED APPETITE [None]
  - JOINT SWELLING [None]
  - WEIGHT INCREASED [None]
